FAERS Safety Report 5947540-1 (Version None)
Quarter: 2008Q4

REPORT INFORMATION
  Report Type: 
  Country: None (occurrence: None)
  Receive Date: 20081110
  Receipt Date: 20081101
  Transmission Date: 20090506
  Serious: Yes (Hospitalization)
  Sender: FDA-Public Use
  Company Number: PHHO2008JP13161

PATIENT
  Sex: Female
  Weight: 67 kg

DRUGS (2)
  1. VAA489A [Suspect]
     Indication: ESSENTIAL HYPERTENSION
     Dosage: 1 DF, UNK
     Route: 048
     Dates: start: 20070928, end: 20080925
  2. AMLODIPINE [Suspect]
     Indication: ESSENTIAL HYPERTENSION
     Dosage: UNK
     Route: 048
     Dates: start: 20070914, end: 20070927

REACTIONS (2)
  - ADRENAL NEOPLASM [None]
  - BLOOD CORTISOL INCREASED [None]
